FAERS Safety Report 7945027-8 (Version None)
Quarter: 2011Q4

REPORT INFORMATION
  Report Type: 
  Country: None (occurrence: None)
  Receive Date: 20111129
  Receipt Date: 20110223
  Transmission Date: 20120403
  Serious: No
  Sender: FDA-Public Use
  Company Number: US-MYLANLABS-2011S1003912

PATIENT
  Age: 52 Year
  Sex: Female

DRUGS (1)
  1. ALLOPURINOL TAB [Suspect]

REACTIONS (1)
  - DRUG INTOLERANCE [None]
